FAERS Safety Report 17529209 (Version 2)
Quarter: 2020Q4

REPORT INFORMATION
  Report Type: Report from Study
  Country: None (occurrence: DE)
  Receive Date: 20200312
  Receipt Date: 20201027
  Transmission Date: 20210113
  Serious: Yes (Hospitalization)
  Sender: FDA-Public Use
  Company Number: DE-ABBVIE-20K-062-3315688-00

PATIENT
  Age: 77 Year
  Sex: Male
  Weight: 78 kg

DRUGS (17)
  1. IBRUTINIB [Suspect]
     Active Substance: IBRUTINIB
     Route: 048
     Dates: start: 20191016
  2. CEFTRIAXONE. [Concomitant]
     Active Substance: CEFTRIAXONE
     Indication: PRODUCT USED FOR UNKNOWN INDICATION
     Dates: start: 20190327, end: 20190415
  3. NATRIUMPICOSULFAT [Concomitant]
     Indication: PROPHYLAXIS
     Dates: start: 20200115, end: 20200130
  4. IBRUTINIB [Suspect]
     Active Substance: IBRUTINIB
     Indication: CHRONIC LYMPHOCYTIC LEUKAEMIA
     Route: 048
     Dates: start: 20190430, end: 20191015
  5. MIRTAZAPINE. [Concomitant]
     Active Substance: MIRTAZAPINE
     Indication: PRODUCT USED FOR UNKNOWN INDICATION
     Dates: start: 20190415
  6. TAMULOSIN [Concomitant]
     Active Substance: TAMSULOSIN
     Indication: PRODUCT USED FOR UNKNOWN INDICATION
  7. DICLOFENAC [Concomitant]
     Active Substance: DICLOFENAC
     Indication: PRODUCT USED FOR UNKNOWN INDICATION
     Dates: start: 20190415
  8. PANTOPRAZOLE [Concomitant]
     Active Substance: PANTOPRAZOLE
     Indication: PROPHYLAXIS
     Dates: start: 20200221
  9. TILIDINE [Concomitant]
     Active Substance: TILIDINE
     Indication: PRODUCT USED FOR UNKNOWN INDICATION
     Dosage: TILIDIN 100/8
     Dates: start: 20190415
  10. ETORICOXIB. [Concomitant]
     Active Substance: ETORICOXIB
     Indication: PROPHYLAXIS
     Dates: start: 20200115, end: 20200130
  11. MACROGOL [Concomitant]
     Active Substance: POLYETHYLENE GLYCOLS
     Indication: PRODUCT USED FOR UNKNOWN INDICATION
     Dates: start: 20200221
  12. KLYSMA SORBIT [Concomitant]
     Dates: start: 20200215, end: 20200220
  13. IBRUTINIB [Suspect]
     Active Substance: IBRUTINIB
     Indication: CHRONIC LYMPHOCYTIC LEUKAEMIA
     Route: 048
     Dates: start: 20180912, end: 20190429
  14. NOVALGIN [Concomitant]
     Indication: PRODUCT USED FOR UNKNOWN INDICATION
     Dates: start: 20190415
  15. KLYSMA SORBIT [Concomitant]
     Indication: PRODUCT USED FOR UNKNOWN INDICATION
     Dates: start: 20190415
  16. MESALAZIN [Concomitant]
     Active Substance: MESALAMINE
     Indication: PRODUCT USED FOR UNKNOWN INDICATION
     Dates: start: 20200115, end: 20200130
  17. CALCITE D [Concomitant]
     Active Substance: CALCIUM CARBONATE
     Indication: PROPHYLAXIS
     Dates: start: 20200115

REACTIONS (3)
  - Constipation [Recovered/Resolved]
  - Dyschezia [Recovered/Resolved]
  - Proctalgia [Recovered/Resolved]

NARRATIVE: CASE EVENT DATE: 20200115
